FAERS Safety Report 8506092-2 (Version None)
Quarter: 2012Q3

REPORT INFORMATION
  Report Type: 
  Country: None (occurrence: None)
  Receive Date: 20120712
  Receipt Date: 20120710
  Transmission Date: 20120928
  Serious: Yes (Hospitalization)
  Sender: FDA-Public Use
  Company Number: FR-GILEAD-2012-0057309

PATIENT
  Sex: Male

DRUGS (8)
  1. NEBIVOLOL HCL [Concomitant]
  2. PERINDOPRIL ERBUMINE [Concomitant]
  3. PLAVIX [Concomitant]
  4. SUBUTEX [Concomitant]
  5. ZOLPIDEM TARTRATE [Concomitant]
  6. TRUVADA [Suspect]
     Indication: HIV INFECTION
     Dosage: 1 DF, QD
     Dates: start: 20060412
  7. SUSTIVA [Suspect]
     Indication: HIV INFECTION
     Dosage: 1 DF, QD
     Dates: start: 20021104
  8. VASTEN                             /00880402/ [Concomitant]

REACTIONS (1)
  - PANCREATITIS ACUTE [None]
